FAERS Safety Report 5236520-X (Version None)
Quarter: 2007Q1

REPORT INFORMATION
  Report Type: 
  Country: None (occurrence: None)
  Receive Date: 20070208
  Receipt Date: 20070131
  Transmission Date: 20070707
  Serious: Yes (Other)
  Sender: FDA-Public Use
  Company Number: CHNY2007DE00742

PATIENT
  Sex: Female

DRUGS (1)
  1. PENCICLOVIR [Suspect]
     Indication: HERPES SIMPLEX
     Dosage: UNK, UNK, TOPICAL
     Route: 061
     Dates: start: 20060101, end: 20060101

REACTIONS (1)
  - SKIN DISCOLOURATION [None]
